FAERS Safety Report 24922003 (Version 1)
Quarter: 2025Q1

REPORT INFORMATION
  Report Type: Spontaneous
  Country: US (occurrence: None)
  Receive Date: 20250203
  Receipt Date: 20250203
  Transmission Date: 20250409
  Serious: Yes (Hospitalization)
  Sender: FDA-CTU
  Company Number: None

PATIENT
  Age: 50 Year
  Sex: Female
  Weight: 113.4 kg

DRUGS (11)
  1. DUPIXENT [Suspect]
     Active Substance: DUPILUMAB
     Indication: Asthma
     Route: 058
  2. CETIRIZINE [Concomitant]
     Active Substance: CETIRIZINE HYDROCHLORIDE
  3. DILTIAZEM [Concomitant]
     Active Substance: DILTIAZEM
  4. DULOXETINE [Concomitant]
     Active Substance: DULOXETINE
  5. FAMOTIDINE [Concomitant]
     Active Substance: FAMOTIDINE
  6. LISINOPRIL [Concomitant]
     Active Substance: LISINOPRIL
  7. METHYLPREDNISOLONE [Concomitant]
     Active Substance: METHYLPREDNISOLONE
  8. MONTELUKAST [Concomitant]
     Active Substance: MONTELUKAST
  9. OLOPATADINE [Concomitant]
     Active Substance: OLOPATADINE
  10. ROSUVASTATIN [Concomitant]
     Active Substance: ROSUVASTATIN
  11. TRELEGY ELLI PTA [Concomitant]

REACTIONS (2)
  - Respiratory disorder [None]
  - Adverse drug reaction [None]

NARRATIVE: CASE EVENT DATE: 20250131
